FAERS Safety Report 10152176 (Version 2)
Quarter: 2014Q2

REPORT INFORMATION
  Report Type: Report from Study
  Country: JP (occurrence: JP)
  Receive Date: 20140505
  Receipt Date: 20140505
  Transmission Date: 20141212
  Serious: Yes (Life-Threatening, Hospitalization)
  Sender: FDA-Public Use
  Company Number: JP-CELGENEUS-087-50794-12090466

PATIENT
  Age: 63 Year
  Sex: Male
  Weight: 59 kg

DRUGS (14)
  1. VIDAZA [Suspect]
     Indication: MYELODYSPLASTIC SYNDROME
     Dosage: 75 MILLIGRAM/SQ. METER
     Route: 058
     Dates: start: 20120412, end: 20120418
  2. VIDAZA [Suspect]
     Dosage: 37.5 MILLIGRAM/SQ. METER
     Route: 058
     Dates: start: 20120531, end: 20120606
  3. VIDAZA [Suspect]
     Route: 058
     Dates: start: 20120720, end: 20120726
  4. VIDAZA [Suspect]
     Route: 058
     Dates: start: 20120910, end: 20120916
  5. VIDAZA [Suspect]
     Route: 058
     Dates: start: 20121116, end: 20121122
  6. ITRIZOLE [Concomitant]
     Indication: PRODUCT USED FOR UNKNOWN INDICATION
     Route: 065
  7. FAMOTIDINE [Concomitant]
     Indication: PRODUCT USED FOR UNKNOWN INDICATION
     Route: 065
  8. POLYMYXIN B SULFATE [Concomitant]
     Indication: PRODUCT USED FOR UNKNOWN INDICATION
     Route: 065
  9. ISCOTIN [Concomitant]
     Indication: PRODUCT USED FOR UNKNOWN INDICATION
     Route: 065
  10. PYDOXAL [Concomitant]
     Indication: PRODUCT USED FOR UNKNOWN INDICATION
     Route: 065
  11. CIFROQUINON [Concomitant]
     Indication: PRODUCT USED FOR UNKNOWN INDICATION
     Route: 065
  12. MAGLAX [Concomitant]
     Indication: PRODUCT USED FOR UNKNOWN INDICATION
     Route: 065
  13. CEFON [Concomitant]
     Indication: PRODUCT USED FOR UNKNOWN INDICATION
     Route: 065
     Dates: start: 20120517, end: 20120528
  14. CEFON [Concomitant]
     Route: 065
     Dates: start: 20120620, end: 20120625

REACTIONS (10)
  - Neutropenia [Recovering/Resolving]
  - Leukopenia [Recovering/Resolving]
  - Neutropenia [Recovering/Resolving]
  - Leukopenia [Recovering/Resolving]
  - Neutropenia [Recovering/Resolving]
  - Leukopenia [Recovering/Resolving]
  - Neutropenia [Recovering/Resolving]
  - Leukopenia [Recovering/Resolving]
  - Febrile neutropenia [Recovering/Resolving]
  - Febrile neutropenia [Recovering/Resolving]
